FAERS Safety Report 12302376 (Version 1)
Quarter: 2016Q2

REPORT INFORMATION
  Report Type: Spontaneous
  Country: IT (occurrence: IT)
  Receive Date: 20160425
  Receipt Date: 20160425
  Transmission Date: 20160815
  Serious: Yes (Hospitalization)
  Sender: FDA-Public Use
  Company Number: IT-PFIZER INC-2016222903

PATIENT
  Age: 50 Year
  Sex: Male

DRUGS (2)
  1. EN [Suspect]
     Active Substance: DELORAZEPAM
     Indication: SUICIDE ATTEMPT
     Dosage: 20 MG, TOTAL
     Route: 048
     Dates: start: 20160128, end: 20160128
  2. FRONTAL [Suspect]
     Active Substance: ALPRAZOLAM
     Dosage: 30 MG, TOTAL
     Route: 048
     Dates: start: 20160128, end: 20160128

REACTIONS (4)
  - Sopor [Unknown]
  - Intentional overdose [Unknown]
  - Poisoning [Unknown]
  - Suicide attempt [Unknown]

NARRATIVE: CASE EVENT DATE: 20160128
